FAERS Safety Report 23563425 (Version 1)
Quarter: 2024Q1

REPORT INFORMATION
  Report Type: Spontaneous
  Country: DE (occurrence: DE)
  Receive Date: 20240226
  Receipt Date: 20240226
  Transmission Date: 20240410
  Serious: Yes (Hospitalization, Other)
  Sender: FDA-Public Use
  Company Number: None

PATIENT
  Age: 48 Year
  Sex: Male

DRUGS (13)
  1. HUMIRA [Suspect]
     Active Substance: ADALIMUMAB
     Indication: Rheumatoid arthritis
     Dosage: 40 MG
     Route: 058
     Dates: start: 20170905, end: 20171213
  2. HUMIRA [Suspect]
     Active Substance: ADALIMUMAB
     Indication: Spondyloarthropathy
     Dosage: 40 MG
     Route: 058
     Dates: start: 20171220
  3. METHOTREXATE [Suspect]
     Active Substance: METHOTREXATE
     Indication: Product used for unknown indication
     Dosage: 7.50 MG/WEEK
     Route: 065
     Dates: end: 20221231
  4. SIMPONI [Suspect]
     Active Substance: GOLIMUMAB
     Indication: Axial spondyloarthritis
     Dosage: 50 MG ( IN PRE-FILLED PEN)
     Route: 058
     Dates: start: 20171220, end: 20230309
  5. SIMPONI [Suspect]
     Active Substance: GOLIMUMAB
     Indication: Spondyloarthropathy
     Dosage: 100 MG ( IN PRE-FILLED PEN)
     Route: 058
     Dates: start: 20230310
  6. ACEMETACIN [Concomitant]
     Active Substance: ACEMETACIN
     Indication: Product used for unknown indication
     Dosage: 180.000MG
     Route: 065
     Dates: start: 20170828
  7. CELECOXIB [Concomitant]
     Active Substance: CELECOXIB
     Dosage: 7 DAYS PER WEEK
     Route: 065
     Dates: start: 20220509
  8. CELECOXIB [Concomitant]
     Active Substance: CELECOXIB
     Dosage: 7 DAYS PER WEEK
     Route: 065
     Dates: start: 20221015
  9. CELECOXIB [Concomitant]
     Active Substance: CELECOXIB
     Indication: Axial spondyloarthritis
     Dosage: 1400 MG/WEEK
     Route: 065
     Dates: start: 20190122, end: 20211225
  10. CELECOXIB [Concomitant]
     Active Substance: CELECOXIB
     Dosage: 4 DAYS PER WEEK
     Route: 065
     Dates: start: 20221015
  11. CELECOXIB [Concomitant]
     Active Substance: CELECOXIB
     Dosage: 2800 MG/ A WEEK
     Route: 065
     Dates: start: 20180716, end: 20181115
  12. CELECOXIB [Concomitant]
     Active Substance: CELECOXIB
     Dosage: 2800 MG/WEEKNSAR (NON-STEROIDAL ANTI-RHEUMATIC)
     Route: 065
     Dates: start: 20171124, end: 20180101
  13. ETORICOXIB [Concomitant]
     Active Substance: ETORICOXIB
     Indication: Product used for unknown indication
     Dosage: 840 MG PER DAY=840/7=120 MG ONCE
     Route: 065
     Dates: start: 20181207, end: 20190122

REACTIONS (30)
  - Vertigo [Unknown]
  - Chronic gastritis [Not Recovered/Not Resolved]
  - Axial spondyloarthritis [Unknown]
  - Chronic idiopathic pain syndrome [Recovered/Resolved]
  - Depression [Recovered/Resolved]
  - Colorectal adenoma [Recovered/Resolved]
  - Intervertebral disc protrusion [Not Recovered/Not Resolved]
  - Oral herpes [Unknown]
  - Lymphadenopathy mediastinal [Unknown]
  - Gastrointestinal infection [Not Recovered/Not Resolved]
  - Chronic idiopathic pain syndrome [Unknown]
  - Restless legs syndrome [Recovered/Resolved]
  - Influenza like illness [Unknown]
  - Arteriosclerosis coronary artery [Unknown]
  - Sarcoidosis [Unknown]
  - Open angle glaucoma [Unknown]
  - Diarrhoea [Unknown]
  - Hypertension [Unknown]
  - Emphysema [Unknown]
  - Bronchial hyperreactivity [Unknown]
  - Anaemia [Unknown]
  - Chronic obstructive pulmonary disease [Unknown]
  - Fall [Unknown]
  - Hyperhidrosis [Unknown]
  - Asthma [Unknown]
  - Nausea [Unknown]
  - Iridocyclitis [Unknown]
  - Nasopharyngitis [Unknown]
  - Aortic dilatation [Unknown]
  - Abdominal discomfort [Unknown]

NARRATIVE: CASE EVENT DATE: 20171225
